FAERS Safety Report 6943655-X (Version None)
Quarter: 2010Q3

REPORT INFORMATION
  Report Type: 
  Country: None (occurrence: None)
  Receive Date: 20100826
  Receipt Date: 20100705
  Transmission Date: 20110219
  Serious: Yes (Hospitalization)
  Sender: FDA-Public Use
  Company Number: ES-ELI_LILLY_AND_COMPANY-ES201008006521

PATIENT
  Sex: Female
  Weight: 62 kg

DRUGS (9)
  1. FORTEO [Suspect]
     Dosage: 20 UG, DAILY (1/D)
     Route: 058
     Dates: start: 20100327
  2. FORMOTEROL FUMARATE [Concomitant]
     Indication: ASTHMA
     Dosage: 9 MG, 2/D
     Route: 055
  3. FLIXOTIDE [Concomitant]
     Indication: ASTHMA
     Dosage: 500 MG, 2/D
     Route: 055
  4. PULMICORT [Concomitant]
     Indication: ASTHMA
     Dosage: 200 MG, 2/D
     Route: 055
  5. SEGURIL [Concomitant]
     Indication: FLUID RETENTION
     Dosage: 40 MG, DAILY (1/D)
     Route: 048
  6. POTASION [Concomitant]
     Dosage: 600 MG, 2/D
     Route: 048
  7. PLANTABEN [Concomitant]
     Indication: IRRITABLE BOWEL SYNDROME
     Dosage: UNK, 2/D
     Route: 048
  8. TEGRETOL [Concomitant]
     Indication: TRIGEMINAL NEURALGIA
     Dosage: 400 MG, 2/D
     Route: 048
  9. DACORTIN [Concomitant]
     Indication: IRRITABLE BOWEL SYNDROME
     Dosage: 90 MG, 2/D
     Route: 048

REACTIONS (1)
  - LUNG INFECTION PSEUDOMONAL [None]
